FAERS Safety Report 8452629-1 (Version None)
Quarter: 2012Q2

REPORT INFORMATION
  Report Type: 
  Country: None (occurrence: None)
  Receive Date: 20120620
  Receipt Date: 20120423
  Transmission Date: 20120825
  Serious: Yes (Hospitalization)
  Sender: FDA-Public Use
  Company Number: US-VERTEX PHARMACEUTICALS INC.-AE-2012-005729

PATIENT
  Sex: Female

DRUGS (4)
  1. PEGASYS [Concomitant]
     Indication: HEPATITIS C
     Route: 058
     Dates: start: 20120307
  2. INCIVEK [Suspect]
     Indication: HEPATITIS C
  3. RIBAVIRIN [Concomitant]
     Indication: HEPATITIS C
     Route: 048
     Dates: start: 20120307
  4. RIBAVIRIN [Concomitant]
     Route: 048
     Dates: start: 20120307

REACTIONS (2)
  - EAR DISCOMFORT [None]
  - HAEMOGLOBIN DECREASED [None]
